FAERS Safety Report 16181157 (Version 2)
Quarter: 2019Q2

REPORT INFORMATION
  Report Type: Report from Study
  Country: CA (occurrence: CA)
  Receive Date: 20190410
  Receipt Date: 20190515
  Transmission Date: 20190711
  Serious: Yes (Life-Threatening, Hospitalization)
  Sender: FDA-Public Use
  Company Number: PHHY2019CA081680

PATIENT
  Age: 72 Year
  Sex: Female
  Weight: 102 kg

DRUGS (2)
  1. DABRAFENIB [Suspect]
     Active Substance: DABRAFENIB
     Indication: ANAPLASTIC THYROID CANCER
     Dosage: 150 MG, BID
     Route: 048
     Dates: start: 20190305
  2. TRAMETINIB [Suspect]
     Active Substance: TRAMETINIB
     Indication: ANAPLASTIC THYROID CANCER
     Dosage: 2 MG, QD
     Route: 048
     Dates: start: 20190305

REACTIONS (1)
  - Gastrointestinal perforation [Recovering/Resolving]
